FAERS Safety Report 6329691-5 (Version None)
Quarter: 2009Q3

REPORT INFORMATION
  Report Type: 
  Country: None (occurrence: None)
  Receive Date: 20090826
  Receipt Date: 20090820
  Transmission Date: 20100115
  Serious: Yes (Hospitalization)
  Sender: FDA-Public Use
  Company Number: CA-WYE-G04281909

PATIENT
  Sex: Male
  Weight: 81.8 kg

DRUGS (19)
  1. RAPAMUNE [Suspect]
     Indication: PROPHYLAXIS AGAINST TRANSPLANT REJECTION
     Route: 048
     Dates: start: 20090728, end: 20090728
  2. RAPAMUNE [Suspect]
     Route: 048
     Dates: start: 20090729, end: 20090804
  3. RAPAMUNE [Suspect]
     Route: 048
     Dates: start: 20090805, end: 20090810
  4. RAPAMUNE [Suspect]
     Route: 048
     Dates: start: 20090811
  5. MYCOPHENOLIC ACID [Suspect]
     Indication: IMMUNOSUPPRESSION
     Dosage: 1440 MG BID
     Route: 048
     Dates: start: 20090407, end: 20090811
  6. MYCOPHENOLIC ACID [Suspect]
     Route: 048
     Dates: start: 20090812, end: 20090817
  7. SOLU-MEDROL [Suspect]
     Indication: IMMUNOSUPPRESSION
     Route: 042
     Dates: start: 20090407, end: 20090407
  8. BACTRIM DS [Suspect]
     Indication: ANTIFUNGAL PROPHYLAXIS
     Route: 048
     Dates: start: 20090407
  9. TRIAMCINOLONE ACETONIDE [Concomitant]
     Indication: MOUTH ULCERATION
     Dosage: BID
     Route: 061
     Dates: start: 20090810
  10. LABETALOL HCL [Concomitant]
     Indication: HYPERTENSION
     Route: 048
     Dates: start: 20090710
  11. AMLODIPINE [Concomitant]
     Indication: HYPERTENSION
     Route: 048
     Dates: start: 20090411
  12. TACROLIMUS [Concomitant]
     Indication: PROPHYLAXIS AGAINST TRANSPLANT REJECTION
     Dates: start: 20090408, end: 20090409
  13. TACROLIMUS [Concomitant]
     Dates: start: 20090410, end: 20090410
  14. TACROLIMUS [Concomitant]
     Dates: start: 20090411, end: 20090414
  15. TACROLIMUS [Concomitant]
     Dates: start: 20090415, end: 20090417
  16. TACROLIMUS [Concomitant]
     Dates: start: 20090418, end: 20090605
  17. TACROLIMUS [Concomitant]
     Dates: start: 20090606, end: 20090709
  18. TACROLIMUS [Concomitant]
     Dates: start: 20090710, end: 20090727
  19. PREDNISONE TAB [Suspect]
     Indication: IMMUNOSUPPRESSION
     Route: 048
     Dates: start: 20090429

REACTIONS (2)
  - BACTERAEMIA [None]
  - PHARYNGITIS [None]
